FAERS Safety Report 22099759 (Version 1)
Quarter: 2023Q1

REPORT INFORMATION
  Report Type: Spontaneous
  Country: JP (occurrence: JP)
  Receive Date: 20230315
  Receipt Date: 20230315
  Transmission Date: 20230418
  Serious: Yes (Hospitalization)
  Sender: FDA-Public Use
  Company Number: JP-Eisai-202207709_LEN-TMC_P_1

PATIENT
  Sex: Female
  Weight: 43 kg

DRUGS (1)
  1. LENVIMA [Suspect]
     Active Substance: LENVATINIB
     Indication: Thymic carcinoma
     Dosage: THE DOSE WAS INCREASED OR DECREASED AS APPROPRIATE.
     Route: 048
     Dates: start: 20220823, end: 202209

REACTIONS (2)
  - Aortic dissection [Not Recovered/Not Resolved]
  - Pyrexia [Unknown]
